FAERS Safety Report 5404840-1 (Version None)
Quarter: 2007Q3

REPORT INFORMATION
  Report Type: 
  Country: None (occurrence: None)
  Receive Date: 20070803
  Receipt Date: 20070727
  Transmission Date: 20080115
  Serious: Yes (Other)
  Sender: FDA-Public Use
  Company Number: PHFR2007GB02295

PATIENT
  Sex: Female

DRUGS (1)
  1. LIORESAL [Suspect]
     Dosage: 20 MG, TID
     Route: 048
     Dates: start: 19920101

REACTIONS (2)
  - DELUSION [None]
  - HALLUCINATION, AUDITORY [None]
